FAERS Safety Report 10141025 (Version 2)
Quarter: 2015Q1

REPORT INFORMATION
  Report Type: Other
  Country: US (occurrence: US)
  Receive Date: 20140429
  Receipt Date: 20150206
  Transmission Date: 20150720
  Serious: Yes (Hospitalization)
  Sender: FDA-Public Use
  Company Number: US-GSKPPD-2014GSK042023

PATIENT
  Age: 50 Year
  Sex: Female

DRUGS (3)
  1. FOSINOPRIL [Concomitant]
     Active Substance: FOSINOPRIL
     Dates: start: 200810
  2. MINOXIDIL. [Concomitant]
     Active Substance: MINOXIDIL
     Dates: start: 200810
  3. AVANDIA [Suspect]
     Active Substance: ROSIGLITAZONE MALEATE
     Indication: DIABETES MELLITUS
     Dosage: DATES OF AVANDIA USE COULD NOT BE CONFIRMED IN RECORDS REVIEWED.
     Route: 048

REACTIONS (2)
  - Cardiac failure congestive [Recovered/Resolved]
  - Cerebrovascular accident [Recovered/Resolved]

NARRATIVE: CASE EVENT DATE: 20081018
